FAERS Safety Report 6159566-6 (Version None)
Quarter: 2009Q2

REPORT INFORMATION
  Report Type: 
  Country: None (occurrence: None)
  Receive Date: 20090416
  Receipt Date: 20090416
  Transmission Date: 20091009
  Serious: No
  Sender: FDA-Public Use
  Company Number: None

PATIENT
  Sex: Female
  Weight: 72.5755 kg

DRUGS (2)
  1. CLONAZEPAM [Suspect]
     Indication: ATTENTION DEFICIT/HYPERACTIVITY DISORDER
     Dosage: 1 MG 30 QT4 TPO QHS MOUTH PROBLEM DOES NOT OCCUR WITH NAME BRAND
     Route: 048
  2. CLONAZEPAM [Suspect]
     Indication: BIPOLAR DISORDER
     Dosage: 1 MG 30 QT4 T PO QHS MOUTH
     Route: 048

REACTIONS (2)
  - DRUG INEFFECTIVE [None]
  - PRODUCT SUBSTITUTION ISSUE [None]
